FAERS Safety Report 6143659-3 (Version None)
Quarter: 2009Q2

REPORT INFORMATION
  Report Type: 
  Country: None (occurrence: None)
  Receive Date: 20090403
  Receipt Date: 20090330
  Transmission Date: 20091009
  Serious: Yes (Hospitalization, Congenital Anomaly)
  Sender: FDA-Public Use
  Company Number: US-KINGPHARMUSA00001-K200900357

PATIENT
  Age: 1 Day
  Sex: Female
  Weight: 2.78 kg

DRUGS (8)
  1. ALTACE [Suspect]
     Dosage: 10 MG, QD
     Route: 064
     Dates: end: 20070215
  2. GLUCOPHAGE [Suspect]
     Dosage: 3000 MG, QD
     Route: 064
     Dates: end: 20070215
  3. ACTOS [Suspect]
     Dosage: 30 MG, QD
     Route: 064
     Dates: end: 20070215
  4. INEXIUM                            /01479302/ [Suspect]
     Dosage: 20 MG, QD
     Route: 064
     Dates: end: 20070215
  5. DICETEL                            /00505101/ [Suspect]
     Dosage: UNK
     Route: 064
     Dates: end: 20070215
  6. NOVOLOG [Concomitant]
     Indication: DIABETES MELLITUS
     Dosage: UNK
     Route: 058
     Dates: start: 20070101
  7. INSULATARD                         /00030504/ [Concomitant]
     Indication: DIABETES MELLITUS
     Dosage: UNK
     Route: 058
     Dates: start: 20070101
  8. NOVORAPID [Concomitant]
     Indication: DIABETES MELLITUS
     Dosage: UNK
     Route: 058
     Dates: start: 20070101

REACTIONS (5)
  - ANOTIA [None]
  - BLOOD GLUCOSE ABNORMAL [None]
  - DRUG EXPOSURE DURING PREGNANCY [None]
  - NEONATAL RESPIRATORY DISTRESS SYNDROME [None]
  - SINGLE UMBILICAL ARTERY [None]
